FAERS Safety Report 5792311-2 (Version None)
Quarter: 2008Q2

REPORT INFORMATION
  Report Type: 
  Country: None (occurrence: None)
  Receive Date: 20080626
  Receipt Date: 20080407
  Transmission Date: 20081010
  Serious: No
  Sender: FDA-Public Use
  Company Number: US-ASTRAZENECA-2008UW06973

PATIENT
  Age: 3 Year
  Sex: Female

DRUGS (1)
  1. PULMICORT-100 [Suspect]
     Route: 055
     Dates: start: 20080301

REACTIONS (2)
  - LIP DRY [None]
  - SKIN IRRITATION [None]
